FAERS Safety Report 8385998-1 (Version None)
Quarter: 2012Q2

REPORT INFORMATION
  Report Type: 
  Country: None (occurrence: None)
  Receive Date: 20120525
  Receipt Date: 20120514
  Transmission Date: 20120825
  Serious: Yes (Other)
  Sender: FDA-Public Use
  Company Number: US-SANOFI-AVENTIS-2012SA035113

PATIENT
  Age: 73 Year
  Sex: Male

DRUGS (1)
  1. GLYBURIDE [Suspect]

REACTIONS (2)
  - CARDIAC DISORDER [None]
  - DRUG INEFFECTIVE [None]
